FAERS Safety Report 22036735 (Version 2)
Quarter: 2023Q1

REPORT INFORMATION
  Report Type: Spontaneous
  Country: CA (occurrence: CA)
  Receive Date: 20230225
  Receipt Date: 20230302
  Transmission Date: 20230417
  Serious: Yes (Other)
  Sender: FDA-Public Use
  Company Number: CA-CELLTRION INC.-2022CA012671

PATIENT

DRUGS (19)
  1. INFLECTRA [Suspect]
     Active Substance: INFLIXIMAB-DYYB
     Indication: Colitis ulcerative
     Dosage: 375 MG, RECEIVED 375 MG ONCE
     Route: 042
     Dates: start: 20191119, end: 20191119
  2. INFLECTRA [Suspect]
     Active Substance: INFLIXIMAB-DYYB
     Dosage: 750 MG, RECEIVED 750 MG ONCE
     Route: 042
     Dates: start: 20191122, end: 20191122
  3. INFLECTRA [Suspect]
     Active Substance: INFLIXIMAB-DYYB
     Dosage: 750 MG, RECEIVED 750 MG ONCE
     Route: 042
     Dates: start: 20191126, end: 20191126
  4. INFLECTRA [Suspect]
     Active Substance: INFLIXIMAB-DYYB
     Dosage: 770 MG, RECEIVED 770 MG ONCE
     Route: 042
     Dates: start: 20191206, end: 20191206
  5. INFLECTRA [Suspect]
     Active Substance: INFLIXIMAB-DYYB
     Dosage: 10 MG/KG,Q 6 WEEKS OR 8 WEEKS
     Route: 042
     Dates: start: 20200109, end: 20200109
  6. INFLECTRA [Suspect]
     Active Substance: INFLIXIMAB-DYYB
     Dosage: 10 MG/KG, EVERY 4 WEEKS, RESCUE DOSE, THEN EVERY 4 WEEKS
     Route: 042
     Dates: start: 20200219
  7. INFLECTRA [Suspect]
     Active Substance: INFLIXIMAB-DYYB
     Dosage: 10 MG/KG, RESCUE DOSE, THEN EVERY 4 WEEKS
     Route: 042
     Dates: start: 20220519
  8. INFLECTRA [Suspect]
     Active Substance: INFLIXIMAB-DYYB
     Dosage: 10 MG/KG, RESCUE DOSE, THEN EVERY 4 WEEKS
     Route: 042
     Dates: start: 20220720
  9. INFLECTRA [Suspect]
     Active Substance: INFLIXIMAB-DYYB
     Dosage: 10 MG/KG, RESCUE DOSE, THEN EVERY 4 WEEKS
     Route: 042
     Dates: start: 20220817
  10. INFLECTRA [Suspect]
     Active Substance: INFLIXIMAB-DYYB
     Dosage: 10 MG/KG, RESCUE DOSE, THEN EVERY 4 WEEKS
     Route: 042
     Dates: start: 20220929
  11. INFLECTRA [Suspect]
     Active Substance: INFLIXIMAB-DYYB
     Dosage: 10 MG/KG, RESCUE DOSE, THEN EVERY 4 WEEKS
     Route: 042
     Dates: start: 20221206
  12. INFLECTRA [Suspect]
     Active Substance: INFLIXIMAB-DYYB
     Dosage: 900 MG, EVERY 4 WEEKS
     Route: 042
     Dates: start: 20230119
  13. INFLECTRA [Suspect]
     Active Substance: INFLIXIMAB-DYYB
     Dosage: 900 MG, (10 MG/KG, ROUNDED UP IF = OR } THAN 50MG OR ROUNDED DOWN IF { 50MG) EVERY 4 WEEKS
     Route: 042
     Dates: start: 20230220
  14. AZATHIOPRINE [Concomitant]
     Active Substance: AZATHIOPRINE
     Dosage: 1 DF,DOSAGE IS UNKNOWN
     Route: 065
     Dates: start: 20191201
  15. CALCIUM [Concomitant]
     Active Substance: CALCIUM
     Dosage: 1 DF,DOSAGE IS UNKNOWN
     Route: 065
  16. CANNABIS SATIVA FLOWERING TOP [Concomitant]
     Active Substance: CANNABIS SATIVA FLOWERING TOP
     Dosage: 1 DF,DOSAGE IS UNKNOWN
     Route: 065
  17. PREDNISONE [Concomitant]
     Active Substance: PREDNISONE
     Dosage: 40 MG, TAPERING, FREQUENCY IS UNKNOWN
     Route: 048
     Dates: start: 20191118
  18. VITAMIN B [Concomitant]
     Active Substance: VITAMIN B
     Dosage: 1 DF, DOSAGE IS UNKNOWN
     Route: 065
  19. VITAMIN D NOS [Concomitant]
     Active Substance: VITAMIN D NOS
     Dosage: 1 DF, WEEKLY,DOSAGE IS UNKNOWN, WEEKLY
     Route: 065

REACTIONS (5)
  - Tonsillitis bacterial [Recovered/Resolved]
  - Pyrexia [Recovered/Resolved]
  - Bacterial infection [Not Recovered/Not Resolved]
  - Off label use [Unknown]
  - Inappropriate schedule of product administration [Unknown]

NARRATIVE: CASE EVENT DATE: 20191119
